FAERS Safety Report 5162706-9 (Version None)
Quarter: 2006Q4

REPORT INFORMATION
  Report Type: 
  Country: None (occurrence: None)
  Receive Date: 20061201
  Receipt Date: 20060801
  Transmission Date: 20070319
  Serious: No
  Sender: FDA-Public Use
  Company Number: 200615919US

PATIENT
  Age: 42 Year
  Sex: Male

DRUGS (3)
  1. AUGMENTIN '125' [Suspect]
     Route: 065
     Dates: start: 20051228
  2. TYLENOL [Concomitant]
  3. THERAFLU [Concomitant]

REACTIONS (1)
  - DRUG INEFFECTIVE [None]
